FAERS Safety Report 7086086-7 (Version None)
Quarter: 2010Q4

REPORT INFORMATION
  Report Type: 
  Country: None (occurrence: None)
  Receive Date: 20101105
  Receipt Date: 20101101
  Transmission Date: 20110411
  Serious: Yes (Other)
  Sender: FDA-Public Use
  Company Number: A0890735A

PATIENT
  Sex: Female

DRUGS (1)
  1. LOVAZA [Suspect]
     Route: 065

REACTIONS (4)
  - CHOKING [None]
  - COUGH [None]
  - DYSPHAGIA [None]
  - FOREIGN BODY [None]
